FAERS Safety Report 12215251 (Version 1)
Quarter: 2016Q1

REPORT INFORMATION
  Report Type: Spontaneous
  Country: None (occurrence: NZ)
  Receive Date: 20160328
  Receipt Date: 20160328
  Transmission Date: 20160526
  Serious: Yes (Hospitalization, Other)
  Sender: FDA-Public Use
  Company Number: NZ-POPULATION COUNCIL, INC.-1049834

PATIENT
  Age: 27 Year
  Sex: Female

DRUGS (1)
  1. JADELLE [Suspect]
     Active Substance: LEVONORGESTREL
     Indication: CONTRACEPTION
     Dates: start: 20110601, end: 20110603

REACTIONS (5)
  - Hallucination [None]
  - Headache [None]
  - Body temperature increased [None]
  - Implant site pain [None]
  - Cellulitis [None]

NARRATIVE: CASE EVENT DATE: 20110601
